FAERS Safety Report 8281757-9 (Version None)
Quarter: 2012Q2

REPORT INFORMATION
  Report Type: 
  Country: None (occurrence: None)
  Receive Date: 20120413
  Receipt Date: 20120406
  Transmission Date: 20120825
  Serious: Yes (Hospitalization, Other)
  Sender: FDA-Public Use
  Company Number: US-BAYER-2011-112002

PATIENT
  Age: 38 Year
  Sex: Female
  Weight: 58.957 kg

DRUGS (20)
  1. YASMIN [Suspect]
     Indication: ACNE
     Dosage: UNK
     Dates: start: 20060101, end: 20071001
  2. WELLBUTRIN [Concomitant]
     Indication: PREMENSTRUAL SYNDROME
     Dosage: UNK UNK, QD
     Route: 048
  3. HEART MEDICATIONS [Concomitant]
  4. YAZ [Suspect]
     Indication: ACNE
     Dosage: UNK
     Dates: start: 20071001, end: 20090801
  5. PROZAC [Concomitant]
     Dosage: UNK UNK, QD
     Route: 048
  6. LORAZEPAM [Concomitant]
     Dosage: 0.5 MG, UNK
  7. MAXZIDE [Concomitant]
     Dosage: UNK UNK, QD
     Route: 048
  8. ZOLOFT [Concomitant]
  9. FLUOXETINE HYDROCHLORIDE [Concomitant]
     Dosage: 20 MG, UNK
  10. WELLBUTRIN [Concomitant]
     Indication: MOOD ALTERED
  11. AVELOX [Concomitant]
     Indication: SINUSITIS
     Dosage: 400 MG, UNK
  12. ASTHMA MEDICATIONS [Concomitant]
  13. YAZ [Suspect]
     Indication: PREMENSTRUAL SYNDROME
  14. WELLBUTRIN [Concomitant]
     Indication: DEPRESSION
  15. YASMIN [Suspect]
     Indication: CONTRACEPTION
  16. YASMIN [Suspect]
     Indication: PREMENSTRUAL SYNDROME
  17. HYDROCODONE [Concomitant]
     Dosage: 7.5-500 MG
  18. YAZ [Suspect]
     Indication: CONTRACEPTION
  19. SKELAXIN [Concomitant]
     Dosage: 800 MG, UNK
  20. OXYCODONE HCL [Concomitant]
     Dosage: 5 MG, UNK

REACTIONS (4)
  - INJURY [None]
  - GALLBLADDER OPERATION [None]
  - PAIN [None]
  - PULMONARY EMBOLISM [None]
